FAERS Safety Report 5162467-3 (Version None)
Quarter: 2006Q4

REPORT INFORMATION
  Report Type: 
  Country: None (occurrence: None)
  Receive Date: 20061129
  Receipt Date: 20061129
  Transmission Date: 20070319
  Serious: No
  Sender: FDA-Public Use
  Company Number: None

PATIENT
  Age: 57 Year
  Weight: 60.782 kg

DRUGS (1)
  1. EFAVIRENZ [Suspect]
     Indication: SYSTEMIC ANTIVIRAL TREATMENT
     Dosage: 600 MG 1 TABLET QHS PO
     Route: 048
     Dates: start: 20060918, end: 20061003

REACTIONS (1)
  - RASH VESICULAR [None]
